FAERS Safety Report 13381319 (Version 1)
Quarter: 2017Q1

REPORT INFORMATION
  Report Type: Spontaneous
  Country: US (occurrence: US)
  Receive Date: 20170329
  Receipt Date: 20170329
  Transmission Date: 20170429
  Serious: No
  Sender: FDA-Public Use
  Company Number: US-TEVA-670255USA

PATIENT
  Sex: Female
  Weight: 56.75 kg

DRUGS (5)
  1. KEPPRA [Concomitant]
     Active Substance: LEVETIRACETAM
  2. HYOSCYAMINE. [Concomitant]
     Active Substance: HYOSCYAMINE
  3. SUCRALFATE. [Suspect]
     Active Substance: SUCRALFATE
     Indication: DIARRHOEA
     Route: 065
  4. SUCRALFATE. [Interacting]
     Active Substance: SUCRALFATE
     Indication: ABDOMINAL PAIN UPPER
  5. DILANTIN [Concomitant]
     Active Substance: PHENYTOIN

REACTIONS (7)
  - Rash [Unknown]
  - Lymphadenopathy [Unknown]
  - Drug interaction [Unknown]
  - Anticonvulsant drug level abnormal [Unknown]
  - Weight decreased [Unknown]
  - Hypersensitivity [Unknown]
  - Dyspnoea [Unknown]
